FAERS Safety Report 8870459 (Version 1)
Quarter: 2012Q4

REPORT INFORMATION
  Report Type: 
  Country: US (occurrence: US)
  Receive Date: 20121023
  Receipt Date: 20121023
  Transmission Date: 20130627
  Serious: No
  Sender: FDA-Public Use
  Company Number: US-AMGEN-USASP2012012318

PATIENT
  Age: 64 Year
  Sex: Female
  Weight: 68.03 kg

DRUGS (10)
  1. ENBREL [Suspect]
     Indication: PRODUCT USED FOR UNKNOWN INDICATION
     Dosage: 50 mg, qwk
  2. CELEBREX [Concomitant]
     Dosage: 200 mg, UNK
  3. PREMARIN [Concomitant]
     Dosage: 0.3 mg, UNK
  4. ARAVA [Concomitant]
     Dosage: 20 mg, UNK
  5. LISINOPRIL [Concomitant]
     Dosage: 5 mg, UNK
  6. FOLIC ACID [Concomitant]
     Dosage: 1 mg, UNK
  7. PREDNISONE [Concomitant]
     Dosage: 10 mg, UNK
  8. OSCAL [Concomitant]
  9. CENTRAL-VITE [Concomitant]
  10. FISH OIL [Concomitant]

REACTIONS (4)
  - Ear infection [Unknown]
  - Sinusitis [Unknown]
  - Bronchitis [Unknown]
  - Upper respiratory tract infection [Unknown]
